FAERS Safety Report 5618813-7 (Version None)
Quarter: 2008Q1

REPORT INFORMATION
  Report Type: 
  Country: None (occurrence: None)
  Receive Date: 20080204
  Receipt Date: 20080129
  Transmission Date: 20080703
  Serious: Yes (Hospitalization)
  Sender: FDA-Public Use
  Company Number: 163-21880-07120164

PATIENT
  Age: 81 Year
  Sex: Male

DRUGS (2)
  1. REVLIMID [Suspect]
     Indication: ANAEMIA
     Dosage: 10 MG, 1 IN 1 D, ORAL
     Route: 048
     Dates: start: 20061206, end: 20071121
  2. REVLIMID [Suspect]
     Indication: MYELODYSPLASTIC SYNDROME
     Dosage: 10 MG, 1 IN 1 D, ORAL
     Route: 048
     Dates: start: 20061206, end: 20071121

REACTIONS (3)
  - GASTRIC INFECTION [None]
  - ILL-DEFINED DISORDER [None]
  - INTESTINAL OBSTRUCTION [None]
